FAERS Safety Report 5478098-1 (Version None)
Quarter: 2007Q4

REPORT INFORMATION
  Report Type: 
  Country: None (occurrence: None)
  Receive Date: 20071005
  Receipt Date: 20061010
  Transmission Date: 20080405
  Serious: No
  Sender: FDA-Public Use
  Company Number: US-BRISTOL-MYERS SQUIBB COMPANY-13536065

PATIENT
  Age: 68 Year
  Sex: Male
  Weight: 101 kg

DRUGS (11)
  1. AVAPRO [Suspect]
     Indication: HYPERTENSION
  2. GLYBURIDE AND METFORMIN HCL [Suspect]
     Indication: DIABETES MELLITUS
     Dosage: DOSAGE: ^GLYB/MET 5/500MG TABLETS THE MEDICATION WAS WRITTEN LIKE THIS.
  3. TOPROL-XL [Concomitant]
  4. VYTORIN [Concomitant]
  5. WARFARIN SODIUM [Concomitant]
  6. LANTUS [Concomitant]
  7. VITAMIN B-12 [Concomitant]
  8. VITAMIN B6 [Concomitant]
  9. FOLIC ACID [Concomitant]
  10. HYDROCHLOROTHIAZIDE [Concomitant]
  11. CO-Q-10 [Concomitant]

REACTIONS (1)
  - WEIGHT INCREASED [None]
